FAERS Safety Report 6333373-3 (Version None)
Quarter: 2009Q3

REPORT INFORMATION
  Report Type: 
  Country: None (occurrence: None)
  Receive Date: 20090828
  Receipt Date: 20090820
  Transmission Date: 20100115
  Serious: Yes (Death, Other)
  Sender: FDA-Public Use
  Company Number: JP-BAXTER-2009BH012907

PATIENT
  Age: 46 Year
  Sex: Male
  Weight: 54 kg

DRUGS (13)
  1. ENDOXAN BAXTER [Suspect]
     Indication: B-CELL LYMPHOMA
     Route: 065
     Dates: start: 20040101
  2. ENDOXAN BAXTER [Suspect]
     Route: 065
     Dates: start: 20040301
  3. ETOPOSIDE [Suspect]
     Indication: B-CELL LYMPHOMA
     Route: 065
     Dates: start: 20040301
  4. DOXORUBICIN HYDROCHLORIDE [Suspect]
     Indication: B-CELL LYMPHOMA
     Route: 065
     Dates: start: 20040101
  5. PREDONINE [Suspect]
     Indication: B-CELL LYMPHOMA
     Route: 065
     Dates: start: 20040101
  6. CYTARABINE [Suspect]
     Indication: B-CELL LYMPHOMA
     Route: 065
     Dates: start: 20040301
  7. CYTARABINE [Suspect]
     Route: 065
     Dates: start: 20040401
  8. DEXAMETHASONE [Suspect]
     Indication: B-CELL LYMPHOMA
     Route: 065
     Dates: start: 20040301
  9. DEXAMETHASONE [Suspect]
     Route: 065
     Dates: start: 20040401
  10. RITUXIMAB [Suspect]
     Indication: B-CELL LYMPHOMA
     Route: 065
     Dates: start: 20040301
  11. RITUXIMAB [Suspect]
     Route: 065
     Dates: start: 20040401
  12. VINCRISTINE SULFATE GENERIC [Suspect]
     Indication: B-CELL LYMPHOMA
     Route: 065
     Dates: start: 20040101
  13. NEUPOGEN [Suspect]
     Indication: DRUG USE FOR UNKNOWN INDICATION
     Route: 065
     Dates: start: 20040701

REACTIONS (3)
  - FEBRILE NEUTROPENIA [None]
  - OBLITERATIVE BRONCHIOLITIS [None]
  - STEVENS-JOHNSON SYNDROME [None]
